FAERS Safety Report 9315684 (Version 2)
Quarter: 2013Q2

REPORT INFORMATION
  Report Type: Spontaneous
  Country: NL (occurrence: NL)
  Receive Date: 20130529
  Receipt Date: 20130610
  Transmission Date: 20140414
  Serious: Yes (Other)
  Sender: FDA-Public Use
  Company Number: NL-ELI_LILLY_AND_COMPANY-NL201305006170

PATIENT
  Sex: Female
  Weight: 80 kg

DRUGS (6)
  1. FORSTEO [Suspect]
     Indication: OSTEOPOROSIS
     Dosage: 20 UG, QD
     Route: 058
     Dates: start: 20120330
  2. FERROFUMARAT [Concomitant]
     Indication: ANAEMIA
     Dosage: UNK UNK, UNKNOWN
     Route: 048
     Dates: start: 201209
  3. FUROSEMIDE [Concomitant]
     Indication: FLUID RETENTION
     Dosage: 40 MG, UNKNOWN
     Route: 048
     Dates: start: 2006
  4. IRBESARTAN [Concomitant]
     Indication: HYPERTENSION
     Dosage: 150 MG, QD
     Route: 048
     Dates: start: 2006
  5. PARACETAMOL/CODEINEFOSFAAT [Concomitant]
     Indication: PAIN
     Dosage: UNK UNK, UNKNOWN
     Route: 048
  6. BUPRENORPHINE [Concomitant]
     Indication: PAIN
     Dosage: UNK UNK, UNKNOWN
     Route: 062

REACTIONS (2)
  - Breast cancer [Not Recovered/Not Resolved]
  - Fatigue [Not Recovered/Not Resolved]
